FAERS Safety Report 14016979 (Version 1)
Quarter: 2017Q3

REPORT INFORMATION
  Report Type: Spontaneous
  Country: US (occurrence: US)
  Receive Date: 20170927
  Receipt Date: 20170927
  Transmission Date: 20171128
  Serious: No
  Sender: FDA-Public Use
  Company Number: US-DEPOMED, INC.-US-2017DEP001248

PATIENT

DRUGS (6)
  1. ATENOLOL. [Concomitant]
     Active Substance: ATENOLOL
     Indication: BLOOD PRESSURE MEASUREMENT
     Dosage: SUPPOSED TO TAKE HALF, BUT SELF INCREASED DOSAGE
     Route: 048
  2. TRAMADOL. [Concomitant]
     Active Substance: TRAMADOL
     Indication: HERPES ZOSTER
     Dosage: TAKEN WHENEVER IT HURTS, TRY NOT TO TAKE IT DURING THE DAY, TAKEN AROUND MIDNIGHT
     Route: 048
     Dates: start: 201703
  3. GRALISE [Suspect]
     Active Substance: GABAPENTIN
     Indication: HERPES ZOSTER
     Dosage: SAMPLE PACK 1200 MG TITRATED UP TO 1800MG STARTED TAKING AT NOON GRADUALLY TAKING AT 6PM
     Route: 048
     Dates: start: 201705, end: 201705
  4. AMOXAPINE. [Concomitant]
     Active Substance: AMOXAPINE
     Indication: BLOOD PRESSURE MEASUREMENT
     Dosage: ONE TABLET BY DAY IN MORNING
     Route: 048
  5. GLIPIZIDE. [Concomitant]
     Active Substance: GLIPIZIDE
     Indication: TYPE 1 DIABETES MELLITUS
     Dosage: TAKEN EVERY MORNING
     Route: 048
  6. QUINAPRIL. [Concomitant]
     Active Substance: QUINAPRIL
     Indication: BLOOD PRESSURE MEASUREMENT
     Dosage: 20 MG, QD
     Route: 048

REACTIONS (6)
  - Somnolence [Unknown]
  - Product use in unapproved indication [Recovered/Resolved]
  - Drug ineffective for unapproved indication [Unknown]
  - Drug dose titration not performed [Unknown]
  - Pain [Unknown]
  - Discomfort [Unknown]

NARRATIVE: CASE EVENT DATE: 201705
